FAERS Safety Report 6426365-7 (Version None)
Quarter: 2009Q4

REPORT INFORMATION
  Report Type: 
  Country: None (occurrence: None)
  Receive Date: 20091103
  Receipt Date: 20091103
  Transmission Date: 20100525
  Serious: No
  Sender: FDA-Public Use
  Company Number: None

PATIENT
  Age: 55 Year
  Sex: Male

DRUGS (2)
  1. INSULIN [Suspect]
     Indication: DIABETES MELLITUS
     Dosage: 12 UNITS SQ
     Route: 058
     Dates: start: 19980506
  2. INSULIN [Suspect]
     Dosage: 90 UNITS SQ
     Route: 058
     Dates: start: 19980220

REACTIONS (6)
  - CONFUSIONAL STATE [None]
  - FALL [None]
  - GRUNTING [None]
  - HYPOGLYCAEMIA [None]
  - INCOHERENT [None]
  - UNEVALUABLE EVENT [None]
